FAERS Safety Report 7262401-6 (Version None)
Quarter: 2011Q1

REPORT INFORMATION
  Report Type: 
  Country: None (occurrence: None)
  Receive Date: 20110130
  Receipt Date: 20101115
  Transmission Date: 20110831
  Serious: No
  Sender: FDA-Public Use
  Company Number: US-ABBOTT-10P-163-0686184-00

PATIENT
  Age: 68 Year
  Sex: Female

DRUGS (7)
  1. BYSTOLIC [Concomitant]
     Indication: HYPERTENSION
     Route: 048
  2. HUMIRA [Suspect]
     Indication: CROHN'S DISEASE
     Route: 058
     Dates: start: 20100723
  3. NEXIUM [Concomitant]
     Indication: PRODUCT USED FOR UNKNOWN INDICATION
     Route: 048
  4. NORVASC [Concomitant]
     Indication: HYPERTENSION
     Route: 048
  5. ENTOCORT EC [Concomitant]
     Indication: PRODUCT USED FOR UNKNOWN INDICATION
     Dosage: TAKES 2 CAPSULES DAILY
     Route: 048
  6. ADICAN [Concomitant]
     Indication: HYPERTENSION
     Route: 048
  7. XANAX [Concomitant]
     Indication: RESTLESS LEGS SYNDROME
     Dosage: AT HOUR OF SLEEP
     Route: 048

REACTIONS (1)
  - CATARACT [None]
